FAERS Safety Report 10229875 (Version 1)
Quarter: 2014Q2

REPORT INFORMATION
  Report Type: Spontaneous
  Country: US (occurrence: None)
  Receive Date: 20140610
  Receipt Date: 20140610
  Transmission Date: 20141212
  Serious: Yes (Other)
  Sender: FDA-Public Use
  Company Number: None

PATIENT
  Age: 52 Year
  Sex: Female
  Weight: 72.58 kg

DRUGS (16)
  1. CARISOPRODOL [Suspect]
     Indication: CHEST PAIN
     Route: 048
     Dates: start: 20140505, end: 20140506
  2. SODIUM DEVAL PRO ER [Concomitant]
  3. FAMRICLOVIR [Concomitant]
  4. WELLBUTRIN [Concomitant]
  5. NUVAIL [Concomitant]
  6. TRUVADA [Concomitant]
  7. ISENTRRESS [Concomitant]
  8. REYATAZ [Concomitant]
  9. REYATAZ [Concomitant]
  10. NORVIN [Concomitant]
  11. METHOCARBORAB [Concomitant]
  12. LORTAB [Concomitant]
  13. TRAMADOL [Concomitant]
  14. LARCA [Concomitant]
  15. VITAMIN C [Concomitant]
  16. ZINK [Concomitant]

REACTIONS (3)
  - Blister [None]
  - Urticaria [None]
  - Scar [None]
